FAERS Safety Report 5352872-4 (Version None)
Quarter: 2007Q2

REPORT INFORMATION
  Report Type: 
  Country: None (occurrence: None)
  Receive Date: 20070611
  Receipt Date: 20070605
  Transmission Date: 20071010
  Serious: Yes (Death)
  Sender: FDA-Public Use
  Company Number: US-ELI_LILLY_AND_COMPANY-US200706000903

PATIENT
  Age: 86 Year
  Sex: Male

DRUGS (8)
  1. ZYPREXA [Suspect]
     Dosage: 20 MG, EACH EVENING
     Route: 048
     Dates: start: 20040305, end: 20040307
  2. ATIVAN [Concomitant]
  3. PROTONIX [Concomitant]
     Dosage: 40 MG, DAILY (1/D)
     Route: 048
  4. SINGULAIR [Concomitant]
     Dosage: 10 MG, DAILY (1/D)
     Route: 048
  5. FLOMAX [Concomitant]
     Dosage: 0.4 MG, DAILY (1/D)
     Route: 048
  6. IRON SULFATETHIAMIN COMPOUND TAB [Concomitant]
     Dosage: 325 MG, DAILY (1/D)
     Route: 048
  7. SINEMET [Concomitant]
     Dosage: UNK D/F, 3/D
     Route: 048
  8. ARICEPT [Concomitant]
     Dosage: 10 MG, UNK
     Route: 048

REACTIONS (1)
  - ASPIRATION [None]
